FAERS Safety Report 21929646 (Version 8)
Quarter: 2024Q4

REPORT INFORMATION
  Report Type: Report from Study
  Country: US (occurrence: US)
  Receive Date: 20230131
  Receipt Date: 20241211
  Transmission Date: 20250114
  Serious: Yes (Other)
  Sender: NOVARTIS
  Company Number: US-002147023-NVSC2023US017810

PATIENT
  Age: 72 Year
  Sex: Female

DRUGS (6)
  1. ENTRESTO [Suspect]
     Active Substance: SACUBITRIL\VALSARTAN
     Indication: Product used for unknown indication
     Dosage: UNK, BID
     Route: 048
  2. METOPROLOL [Suspect]
     Active Substance: METOPROLOL
     Indication: Product used for unknown indication
     Dosage: UNK
     Route: 065
  3. GABAPENTIN [Suspect]
     Active Substance: GABAPENTIN
     Indication: Product used for unknown indication
     Dosage: UNK
     Route: 065
  4. COUMADIN [Suspect]
     Active Substance: WARFARIN SODIUM
     Indication: International normalised ratio abnormal
     Dosage: UNK
     Route: 065
  5. HEPARIN;SODIUM CHLORIDE [Concomitant]
     Indication: International normalised ratio abnormal
     Dosage: UNK (DRIP)
     Route: 042
  6. PROTONIX [Concomitant]
     Active Substance: PANTOPRAZOLE SODIUM
     Indication: Product used for unknown indication
     Dosage: UNK
     Route: 065

REACTIONS (21)
  - Atrial fibrillation [Unknown]
  - Hypotension [Unknown]
  - Peripheral swelling [Unknown]
  - Flatulence [Unknown]
  - Blood glucose increased [Unknown]
  - Influenza [Recovered/Resolved]
  - Fall [Unknown]
  - Tremor [Unknown]
  - Insomnia [Unknown]
  - Limb discomfort [Unknown]
  - Sluggishness [Unknown]
  - Condition aggravated [Unknown]
  - COVID-19 [Unknown]
  - Chest discomfort [Unknown]
  - Pain [Recovering/Resolving]
  - Alopecia [Unknown]
  - Memory impairment [Unknown]
  - Thyroid function test abnormal [Unknown]
  - Dyspnoea [Unknown]
  - Product dose omission in error [Unknown]
  - Inappropriate schedule of product administration [Unknown]

NARRATIVE: CASE EVENT DATE: 20230317
